FAERS Safety Report 21452470 (Version 3)
Quarter: 2022Q4

REPORT INFORMATION
  Report Type: Other
  Country: US (occurrence: None)
  Receive Date: 20221013
  Receipt Date: 20221209
  Transmission Date: 20230113
  Serious: Yes (Other)
  Sender: FDA-Public Use
  Company Number: US-ROCHE-2596804

PATIENT
  Age: 73 Year
  Sex: Female

DRUGS (1)
  1. ERIVEDGE [Suspect]
     Active Substance: VISMODEGIB
     Indication: Basal cell carcinoma
     Dosage: TAKE 1 CAPSULE BY MOUTH DAILY
     Route: 048

REACTIONS (11)
  - Ageusia [Unknown]
  - Muscle spasms [Unknown]
  - Alopecia [Unknown]
  - Fatigue [Unknown]
  - Constipation [Unknown]
  - Decreased appetite [Unknown]
  - Hair growth abnormal [Unknown]
  - Pruritus [Unknown]
  - Muscle atrophy [Unknown]
  - Weight decreased [Unknown]
  - Nephrolithiasis [Unknown]
